FAERS Safety Report 5288149-5 (Version None)
Quarter: 2007Q1

REPORT INFORMATION
  Report Type: 
  Country: None (occurrence: None)
  Receive Date: 20070118
  Receipt Date: 20061030
  Transmission Date: 20070707
  Serious: Yes (Other)
  Sender: FDA-Public Use
  Company Number: HQWYE126101NOV06

PATIENT
  Age: 34 Year
  Sex: Female
  Weight: 63.56 kg

DRUGS (1)
  1. ADVIL PM [Suspect]
     Indication: PAIN
     Dosage: 2 TABLET 1X PER 1 DAY, ORAL
     Route: 048
     Dates: start: 20061019, end: 20061020

REACTIONS (2)
  - HEADACHE [None]
  - NAUSEA [None]
